FAERS Safety Report 17791141 (Version 2)
Quarter: 2020Q4

REPORT INFORMATION
  Report Type: Spontaneous
  Country: CA (occurrence: CA)
  Receive Date: 20200515
  Receipt Date: 20201009
  Transmission Date: 20210113
  Serious: Yes (Other)
  Sender: FDA-Public Use
  Company Number: CA-LUPIN PHARMACEUTICALS INC.-2020-02143

PATIENT
  Age: 64 Year
  Sex: Female

DRUGS (3)
  1. MORPHINE [Suspect]
     Active Substance: MORPHINE
     Indication: ANAESTHESIA PROCEDURE
     Dosage: UNK
     Route: 065
  2. FENTANYL. [Suspect]
     Active Substance: FENTANYL
     Indication: ANAESTHESIA PROCEDURE
     Dosage: UNK
     Route: 065
  3. BUPIVACAINE. [Suspect]
     Active Substance: BUPIVACAINE
     Indication: ANAESTHESIA PROCEDURE
     Dosage: UNK
     Route: 065

REACTIONS (5)
  - Postpartum haemorrhage [Unknown]
  - Maternal exposure during delivery [Unknown]
  - Uterine atony [Unknown]
  - Atrioventricular block second degree [Unknown]
  - Bradycardia [Unknown]
